FAERS Safety Report 13898231 (Version 1)
Quarter: 2017Q3

REPORT INFORMATION
  Report Type: Spontaneous
  Country: GB (occurrence: GB)
  Receive Date: 20170824
  Receipt Date: 20170824
  Transmission Date: 20171127
  Serious: Yes (Other)
  Sender: FDA-Public Use
  Company Number: GB-SUN PHARMACEUTICAL INDUSTRIES LTD-2017RR-148245

PATIENT
  Age: 35 Year
  Sex: Female
  Weight: 63 kg

DRUGS (2)
  1. SERTRALINE [Suspect]
     Active Substance: SERTRALINE HYDROCHLORIDE
     Indication: DEPRESSION
     Dosage: 2.5MG INITIALLY, THEN INCREASED TO 25MG - SIDE EFFECTS AT BOTH DOSES
     Route: 048
     Dates: start: 20170705
  2. SERTRALINE [Suspect]
     Active Substance: SERTRALINE HYDROCHLORIDE
     Dosage: 12.5MG INITIALLY, THEN INCREASED TO 25MG - SIDE EFFECTS AT BOTH DOSES
     Route: 048
     Dates: end: 20170801

REACTIONS (3)
  - Hunger [Not Recovered/Not Resolved]
  - Tremor [Unknown]
  - Hypoglycaemia [Not Recovered/Not Resolved]

NARRATIVE: CASE EVENT DATE: 20170708
